FAERS Safety Report 25870407 (Version 1)
Quarter: 2025Q4

REPORT INFORMATION
  Report Type: Spontaneous
  Country: GB (occurrence: GB)
  Receive Date: 20251001
  Receipt Date: 20251001
  Transmission Date: 20260117
  Serious: Yes (Other)
  Sender: PURDUE
  Company Number: GB-MHRA-TPP7502294C15836439YC1758723113466

PATIENT
  Age: 63 Year
  Sex: Male
  Weight: 82 kg

DRUGS (33)
  1. BUPRENORPHINE [Suspect]
     Active Substance: BUPRENORPHINE
     Indication: Ill-defined disorder
     Dosage: 1 PATCH
     Route: 065
     Dates: start: 20250912
  2. PERMETHRIN [Concomitant]
     Active Substance: PERMETHRIN
     Indication: Ill-defined disorder
     Dosage: 1 APPLICATION
     Route: 065
     Dates: start: 20250628, end: 20250630
  3. CARBOHYDRATES\FATTY ACIDS\MINERALS\PROTEIN\VITAMINS [Concomitant]
     Active Substance: CARBOHYDRATES\FATTY ACIDS\MINERALS\PROTEIN\VITAMINS
     Indication: Ill-defined disorder
     Dosage: 200 ML
     Route: 065
     Dates: start: 20250818, end: 20250910
  4. LACTULOSE [Concomitant]
     Active Substance: LACTULOSE
     Indication: Ill-defined disorder
     Dosage: 15 ML
     Route: 065
     Dates: start: 20250806, end: 20250903
  5. DERMOL [Concomitant]
     Active Substance: BENZALKONIUM CHLORIDE\CHLORHEXIDINE HYDROCHLORIDE\ISOPROPYL MYRISTATE\PARAFFIN
     Indication: Ill-defined disorder
     Dosage: 1 APPLICATION
     Route: 065
     Dates: start: 20250901
  6. NAPROXEN [Concomitant]
     Active Substance: NAPROXEN
     Indication: Ill-defined disorder
     Dosage: 1 TABLET
     Route: 065
     Dates: start: 20250822, end: 20250919
  7. MORPHINE SULFATE [Concomitant]
     Active Substance: MORPHINE SULFATE
     Indication: Ill-defined disorder
     Dosage: 1 CAPSULE
     Route: 065
     Dates: start: 20250913
  8. BUTRANS [Concomitant]
     Active Substance: BUPRENORPHINE
     Indication: Ill-defined disorder
     Dosage: 1 PATCH
     Route: 065
     Dates: start: 20250919, end: 20250919
  9. LOPERAMIDE [Concomitant]
     Active Substance: LOPERAMIDE
     Indication: Ill-defined disorder
     Dosage: 2 CAPSULE
     Route: 065
     Dates: start: 20250922, end: 20250922
  10. INDAPAMIDE [Concomitant]
     Active Substance: INDAPAMIDE
     Indication: Ill-defined disorder
     Dosage: 1 TABLET
     Route: 065
     Dates: start: 20241118
  11. AMLODIPINE [Concomitant]
     Active Substance: AMLODIPINE BESYLATE
     Indication: Ill-defined disorder
     Dosage: 1 TABLET
     Route: 065
     Dates: start: 20241118
  12. ATORVASTATIN [Concomitant]
     Active Substance: ATORVASTATIN
     Indication: Ill-defined disorder
     Dosage: 1 TABLET
     Route: 065
     Dates: start: 20241118
  13. BECLOMETHASONE DIPROPIONATE [Concomitant]
     Active Substance: BECLOMETHASONE DIPROPIONATE
     Indication: Ill-defined disorder
     Dosage: 1 SPRAY
     Route: 065
     Dates: start: 20241118
  14. CETIRIZINE [Concomitant]
     Active Substance: CETIRIZINE HYDROCHLORIDE
     Indication: Ill-defined disorder
     Dosage: 1 TABLET
     Route: 065
     Dates: start: 20241118
  15. ACETAMINOPHEN [Concomitant]
     Active Substance: ACETAMINOPHEN
     Indication: Ill-defined disorder
     Dosage: 1-2 TABLET
     Route: 065
     Dates: start: 20241118
  16. FINASTERIDE [Concomitant]
     Active Substance: FINASTERIDE
     Indication: Ill-defined disorder
     Dosage: 1 TABLET
     Route: 065
     Dates: start: 20250303
  17. FEXOFENADINE [Concomitant]
     Active Substance: FEXOFENADINE HYDROCHLORIDE
     Indication: Ill-defined disorder
     Dosage: 1 TABLET
     Route: 065
     Dates: start: 20250417, end: 20250812
  18. Aproderm [Concomitant]
     Indication: Ill-defined disorder
     Dosage: 1 APPLICATION
     Route: 065
     Dates: start: 20250429
  19. KETOCONAZOLE [Concomitant]
     Active Substance: KETOCONAZOLE
     Indication: Ill-defined disorder
     Dosage: 1 APPLICATION
     Route: 065
     Dates: start: 20250507
  20. HYDROCORTISONE [Concomitant]
     Active Substance: HYDROCORTISONE
     Indication: Ill-defined disorder
     Dosage: 1 APPLICATION
     Route: 065
     Dates: start: 20250701
  21. LANSOPRAZOLE [Concomitant]
     Active Substance: LANSOPRAZOLE
     Indication: Ill-defined disorder
     Dosage: 1 CAPSULE
     Route: 065
     Dates: start: 20250701
  22. LANOLIN\LIGHT MINERAL OIL\PARAFFIN [Concomitant]
     Active Substance: LANOLIN\LIGHT MINERAL OIL\PARAFFIN
     Indication: Ill-defined disorder
     Dosage: 1 APPLICATION
     Route: 065
     Dates: start: 20250709
  23. COLESEVELAM HYDROCHLORIDE [Concomitant]
     Active Substance: COLESEVELAM HYDROCHLORIDE
     Indication: Ill-defined disorder
     Dosage: 2 TABLET
     Route: 065
     Dates: start: 20250709
  24. CODEINE PHOSPHATE [Concomitant]
     Active Substance: CODEINE PHOSPHATE
     Indication: Ill-defined disorder
     Dosage: 1-2 TABLET
     Route: 065
     Dates: start: 20250709, end: 20250822
  25. DOMPERIDONE [Concomitant]
     Active Substance: DOMPERIDONE
     Indication: Ill-defined disorder
     Dosage: 1 TABLET
     Route: 065
     Dates: start: 20250812
  26. FORTICREME COMPLETE [Concomitant]
     Indication: Ill-defined disorder
     Dosage: 125 G
     Route: 065
     Dates: start: 20250812, end: 20250813
  27. PROMETHAZINE HYDROCHLORIDE [Concomitant]
     Active Substance: PROMETHAZINE HYDROCHLORIDE
     Indication: Ill-defined disorder
     Dosage: 1 TABLET
     Route: 065
     Dates: start: 20250812
  28. Nutricrem [Concomitant]
     Indication: Ill-defined disorder
     Dosage: 125 G
     Route: 065
     Dates: start: 20250813, end: 20250901
  29. MORPHINE SULFATE [Concomitant]
     Active Substance: MORPHINE SULFATE
     Indication: Ill-defined disorder
     Dosage: 2.5-5 ML
     Route: 065
     Dates: start: 20250822
  30. ORALIEVE MOISTURISING MOUTH GEL [Concomitant]
     Indication: Ill-defined disorder
     Dosage: 1 SPRAY
     Route: 065
     Dates: start: 20250901
  31. Actagain 2.0 [Concomitant]
     Indication: Ill-defined disorder
     Dosage: 200 ML
     Route: 065
     Dates: start: 20250909
  32. MENTHOL [Concomitant]
     Active Substance: MENTHOL
     Indication: Ill-defined disorder
     Dosage: 1 APPLICATION
     Route: 065
     Dates: start: 20250916
  33. PROCHLORPERAZINE [Concomitant]
     Active Substance: PROCHLORPERAZINE
     Indication: Ill-defined disorder
     Dosage: 1 TABLET
     Route: 065
     Dates: start: 20250916

REACTIONS (4)
  - Skin wound [Unknown]
  - Chemical burn [Unknown]
  - Skin reaction [Recovering/Resolving]
  - Skin burning sensation [Recovering/Resolving]
